FAERS Safety Report 12797920 (Version 1)
Quarter: 2016Q3

REPORT INFORMATION
  Report Type: Spontaneous
  Country: US (occurrence: US)
  Receive Date: 20160929
  Receipt Date: 20160929
  Transmission Date: 20161109
  Serious: Yes (Death, Life-Threatening)
  Sender: FDA-Public Use
  Company Number: None

PATIENT
  Sex: Male
  Weight: 112.5 kg

DRUGS (1)
  1. VICTOZA [Suspect]
     Active Substance: LIRAGLUTIDE
     Indication: BLOOD GLUCOSE ABNORMAL
     Dosage: ?          QUANTITY:1.2 INJECTION(S);?
     Route: 058
     Dates: start: 20110112, end: 20120727

REACTIONS (5)
  - Metastases to liver [None]
  - Drug ineffective [None]
  - Malaise [None]
  - Pancreatic carcinoma [None]
  - Pain [None]
